FAERS Safety Report 5100715-6 (Version None)
Quarter: 2006Q3

REPORT INFORMATION
  Report Type: 
  Country: None (occurrence: None)
  Receive Date: 20060731
  Receipt Date: 20060517
  Transmission Date: 20061208
  Serious: No
  Sender: FDA-Public Use
  Company Number: 2006PV014003

PATIENT
  Age: 60 Year
  Sex: Female
  Weight: 87.9978 kg

DRUGS (9)
  1. BYETTA [Suspect]
     Indication: DIABETES MELLITUS NON-INSULIN-DEPENDENT
     Dosage: 10 MCG;BID;SC; 5 MCG;BID;SC
     Route: 058
     Dates: start: 20060101, end: 20060513
  2. BYETTA [Suspect]
     Indication: DIABETES MELLITUS NON-INSULIN-DEPENDENT
     Dosage: 10 MCG;BID;SC; 5 MCG;BID;SC
     Route: 058
     Dates: start: 20060514
  3. PREDNISONE TAB [Suspect]
     Dosage: 20 MG;QD;
     Dates: start: 20060101, end: 20060101
  4. GLYBURIDE [Concomitant]
  5. METFORMIN HCL [Concomitant]
  6. ASPIRIN [Concomitant]
  7. GABAPENTIN [Concomitant]
  8. NAPROSYN [Concomitant]
  9. TYLENOL EXTRA-STRENGTH [Concomitant]

REACTIONS (12)
  - ASTHENIA [None]
  - BLOOD GLUCOSE INCREASED [None]
  - BRONCHITIS VIRAL [None]
  - COUGH [None]
  - DEPRESSED MOOD [None]
  - INJECTION SITE PAIN [None]
  - LIVEDO RETICULARIS [None]
  - PAIN [None]
  - PYREXIA [None]
  - RESPIRATORY TRACT CONGESTION [None]
  - STEROID WITHDRAWAL SYNDROME [None]
  - WEIGHT DECREASED [None]
